FAERS Safety Report 5216423-7 (Version None)
Quarter: 2006Q4

REPORT INFORMATION
  Report Type: 
  Country: None (occurrence: None)
  Receive Date: 20061127
  Receipt Date: 20051003
  Transmission Date: 20070319
  Serious: Yes (Other)
  Sender: FDA-Public Use
  Company Number: HQWYE003918AUG05

PATIENT
  Age: 44 Year
  Sex: Female
  Weight: 57.66 kg

DRUGS (2)
  1. INDERAL [Suspect]
     Indication: ESSENTIAL TREMOR
     Dosage: 80 MG 1X PER 1 DAY, ORAL
     Route: 048
     Dates: start: 20050701, end: 20050814
  2. ALTACE [Concomitant]

REACTIONS (3)
  - MEDICATION ERROR [None]
  - NAUSEA [None]
  - VOMITING [None]
